FAERS Safety Report 20531959 (Version 1)
Quarter: 2022Q1

REPORT INFORMATION
  Report Type: Spontaneous
  Country: FR (occurrence: FR)
  Receive Date: 20220301
  Receipt Date: 20220301
  Transmission Date: 20220423
  Serious: Yes (Hospitalization, Other)
  Sender: FDA-Public Use
  Company Number: FR-PFIZER INC-202200337936

PATIENT
  Age: 19 Year
  Sex: Male

DRUGS (9)
  1. PIPERACILLIN SODIUM\TAZOBACTAM SODIUM [Suspect]
     Active Substance: PIPERACILLIN SODIUM\TAZOBACTAM SODIUM
     Indication: Hyperthermia
     Dosage: UNK
     Dates: start: 20211119, end: 20211126
  2. PIPERACILLIN SODIUM\TAZOBACTAM SODIUM [Suspect]
     Active Substance: PIPERACILLIN SODIUM\TAZOBACTAM SODIUM
     Indication: Inflammation
  3. MEROPENEM [Suspect]
     Active Substance: MEROPENEM
     Indication: Hyperthermia
     Dosage: UNK
     Dates: start: 20211201, end: 20211212
  4. MEROPENEM [Suspect]
     Active Substance: MEROPENEM
     Indication: Inflammation
  5. AMIKACIN [Suspect]
     Active Substance: AMIKACIN
     Indication: Hyperthermia
     Dosage: UNK
     Dates: start: 20211201, end: 20211212
  6. AMIKACIN [Suspect]
     Active Substance: AMIKACIN
     Indication: Inflammation
  7. CEFTRIAXONE SODIUM [Suspect]
     Active Substance: CEFTRIAXONE SODIUM
     Indication: Post procedural complication
     Dosage: UNK
     Dates: start: 20211108
  8. VANCOMYCIN [Suspect]
     Active Substance: VANCOMYCIN
     Indication: Post procedural complication
     Dosage: UNK
     Dates: start: 20211108
  9. VANCOMYCIN [Suspect]
     Active Substance: VANCOMYCIN
     Dosage: UNK
     Dates: start: 20211205, end: 20211212

REACTIONS (5)
  - Off label use [Unknown]
  - Drug ineffective for unapproved indication [Unknown]
  - Pericardial effusion [Unknown]
  - Lung disorder [Unknown]
  - Hypermetabolism [Unknown]

NARRATIVE: CASE EVENT DATE: 20211123
